FAERS Safety Report 17121375 (Version 1)
Quarter: 2019Q4

REPORT INFORMATION
  Report Type: Spontaneous
  Country: US (occurrence: US)
  Receive Date: 20191205
  Receipt Date: 20191205
  Transmission Date: 20200122
  Serious: Yes (Other)
  Sender: FDA-Public Use
  Company Number: None

PATIENT
  Age: 23 Year
  Sex: Female
  Weight: 54.4 kg

DRUGS (1)
  1. FLUOXETINE [Suspect]
     Active Substance: FLUOXETINE HYDROCHLORIDE

REACTIONS (6)
  - Seizure [None]
  - Nausea [None]
  - Drug screen positive [None]
  - Dizziness [None]
  - Intentional overdose [None]
  - Headache [None]

NARRATIVE: CASE EVENT DATE: 20191102
